FAERS Safety Report 25436784 (Version 1)
Quarter: 2025Q2

REPORT INFORMATION
  Report Type: Other
  Country: MX (occurrence: MX)
  Receive Date: 20250615
  Receipt Date: 20250615
  Transmission Date: 20250717
  Serious: Yes (Hospitalization, Disabling, Other)
  Sender: DEXCEL LTD.
  Company Number: MX-DEXPHARM-2025-3438

PATIENT
  Age: 24 Year
  Sex: Male

DRUGS (1)
  1. DEXAMETHASONE [Suspect]
     Active Substance: DEXAMETHASONE

REACTIONS (1)
  - Thyrotoxic periodic paralysis [Recovered/Resolved]
